FAERS Safety Report 8494550-9 (Version None)
Quarter: 2012Q3

REPORT INFORMATION
  Report Type: 
  Country: None (occurrence: None)
  Receive Date: 20120709
  Receipt Date: 20120628
  Transmission Date: 20120928
  Serious: Yes (Other)
  Sender: FDA-Public Use
  Company Number: US-GENZYME-FABR-1002268

PATIENT
  Sex: Male
  Weight: 25 kg

DRUGS (9)
  1. VITAMIN B-12 [Concomitant]
     Indication: PRODUCT USED FOR UNKNOWN INDICATION
     Dosage: UNK
     Route: 065
  2. PRILOSEC [Concomitant]
     Indication: PRODUCT USED FOR UNKNOWN INDICATION
     Dosage: UNK
     Route: 065
  3. FABRAZYME [Suspect]
     Dosage: 35 MG, UNK
     Route: 042
     Dates: start: 20110101
  4. FABRAZYME [Suspect]
     Indication: FABRY'S DISEASE
     Dosage: 25 MG, Q2W
     Route: 042
     Dates: start: 20060401
  5. CALCIUM [Concomitant]
     Indication: PRODUCT USED FOR UNKNOWN INDICATION
     Dosage: UNK
     Route: 065
  6. FABRAZYME [Suspect]
     Dosage: 10 MG, Q3W
     Route: 042
     Dates: start: 20090101
  7. FABRAZYME [Suspect]
     Dosage: 20 MG, Q2W
     Route: 042
     Dates: start: 20060101
  8. FABRAZYME [Suspect]
     Dosage: 25 MG, Q2W
     Route: 042
     Dates: start: 20080101
  9. FABRAZYME [Suspect]
     Dosage: 35 MG, Q2W
     Route: 042
     Dates: start: 20120101

REACTIONS (2)
  - GASTROINTESTINAL INFLAMMATION [None]
  - GASTROOESOPHAGEAL REFLUX DISEASE [None]
